FAERS Safety Report 21676091 (Version 2)
Quarter: 2022Q4

REPORT INFORMATION
  Report Type: Spontaneous
  Country: RS (occurrence: RS)
  Receive Date: 20221202
  Receipt Date: 20221221
  Transmission Date: 20230112
  Serious: Yes (Other)
  Sender: FDA-Public Use
  Company Number: RS-BAUSCH-BL-2022-024297

PATIENT
  Age: 38 Year
  Sex: Female
  Weight: 112 kg

DRUGS (4)
  1. BUPROPION HYDROCHLORIDE\NALTREXONE HYDROCHLORIDE [Suspect]
     Active Substance: BUPROPION HYDROCHLORIDE\NALTREXONE HYDROCHLORIDE
     Indication: Product used for unknown indication
     Dosage: 8/90 MG, AS PER SCHEME
     Route: 065
     Dates: start: 202208
  2. BUPROPION HYDROCHLORIDE\NALTREXONE HYDROCHLORIDE [Suspect]
     Active Substance: BUPROPION HYDROCHLORIDE\NALTREXONE HYDROCHLORIDE
     Dosage: 8/90 MG, SECOND WEEK ON THE DOSE ON ONE TABLET IN THE MORNING AND ONE AT THE EVENING
     Route: 065
     Dates: start: 2022, end: 2022
  3. BUPROPION HYDROCHLORIDE\NALTREXONE HYDROCHLORIDE [Suspect]
     Active Substance: BUPROPION HYDROCHLORIDE\NALTREXONE HYDROCHLORIDE
     Dosage: 8/90 MG, 2 PLUS 1 DOSAGE (1 IN 12 HR)
     Route: 065
     Dates: start: 2022, end: 2022
  4. BUPROPION HYDROCHLORIDE\NALTREXONE HYDROCHLORIDE [Suspect]
     Active Substance: BUPROPION HYDROCHLORIDE\NALTREXONE HYDROCHLORIDE
     Dosage: 8/90 MG, STOPPED AT FULL DOSE
     Route: 065
     Dates: start: 2022, end: 2022

REACTIONS (4)
  - Intra-uterine contraceptive device insertion [Unknown]
  - Vaginal haemorrhage [Not Recovered/Not Resolved]
  - Therapy interrupted [Unknown]
  - Intentional product use issue [Unknown]

NARRATIVE: CASE EVENT DATE: 20220101
